FAERS Safety Report 17731120 (Version 1)
Quarter: 2020Q2

REPORT INFORMATION
  Report Type: Report from Study
  Country: IN (occurrence: IN)
  Receive Date: 20200430
  Receipt Date: 20200430
  Transmission Date: 20200714
  Serious: Yes (Other)
  Sender: FDA-Public Use
  Company Number: NVSC2020IN070181

PATIENT
  Age: 51 Year
  Sex: Female
  Weight: 90 kg

DRUGS (1)
  1. GALVUS MET [Suspect]
     Active Substance: METFORMIN HYDROCHLORIDE\VILDAGLIPTIN
     Indication: DIABETES MELLITUS
     Dosage: 1 DF (500/50 MG), BID (1-0-1)
     Route: 048
     Dates: start: 20191214

REACTIONS (7)
  - Body mass index increased [Unknown]
  - Fatigue [Unknown]
  - Pain in extremity [Unknown]
  - Incorrect product administration duration [Unknown]
  - Sleep disorder [Unknown]
  - Overweight [Unknown]
  - Blood glucose increased [Unknown]

NARRATIVE: CASE EVENT DATE: 20200421
